FAERS Safety Report 6663070-6 (Version None)
Quarter: 2010Q1

REPORT INFORMATION
  Report Type: 
  Country: None (occurrence: None)
  Receive Date: 20100326
  Receipt Date: 20091224
  Transmission Date: 20100710
  Serious: Yes (Hospitalization)
  Sender: FDA-Public Use
  Company Number: 2009EN000324

PATIENT
  Age: 19 Year
  Sex: Male

DRUGS (7)
  1. ONCASPAR [Suspect]
     Indication: ACUTE LYMPHOCYTIC LEUKAEMIA
     Dates: end: 20091210
  2. APAP W/ CODEINE [Concomitant]
  3. ZOFRAN [Concomitant]
  4. COMPAZINE [Concomitant]
  5. NASONEX [Concomitant]
  6. CIPRO [Concomitant]
  7. LEVAQUIN [Concomitant]

REACTIONS (3)
  - DYSPNOEA [None]
  - HYPERSENSITIVITY [None]
  - LOSS OF CONSCIOUSNESS [None]
